FAERS Safety Report 22249211 (Version 1)
Quarter: 2023Q2

REPORT INFORMATION
  Report Type: Spontaneous
  Country: None (occurrence: US)
  Receive Date: 20230425
  Receipt Date: 20230425
  Transmission Date: 20230722
  Serious: No
  Sender: FDA-Public Use
  Company Number: US-P+L Developments of Newyork Corporation-2140755

PATIENT
  Age: 33 Year
  Sex: Female

DRUGS (1)
  1. LORATADINE AND PSEUDOEPHEDRINE SULFATE [Suspect]
     Active Substance: LORATADINE\PSEUDOEPHEDRINE SULFATE
     Indication: Cold urticaria
     Route: 048
     Dates: start: 20230415, end: 20230419

REACTIONS (3)
  - Drug ineffective [Unknown]
  - Palpitations [Unknown]
  - Swelling [Unknown]
